FAERS Safety Report 6148000-8 (Version None)
Quarter: 2009Q2

REPORT INFORMATION
  Report Type: 
  Country: None (occurrence: None)
  Receive Date: 20090408
  Receipt Date: 20090401
  Transmission Date: 20091009
  Serious: Yes (Death)
  Sender: FDA-Public Use
  Company Number: PL-ROCHE-625449

PATIENT
  Age: 72 Year
  Sex: Female

DRUGS (35)
  1. CLONAZEPAM [Suspect]
     Indication: DRUG USE FOR UNKNOWN INDICATION
     Route: 065
     Dates: start: 20080320
  2. MORPHINE [Concomitant]
     Dosage: CONTROLLED RELEASE. 5-10MG PRN IMMEDIATE RELEASE MORPHINE
     Dates: start: 20061101, end: 20061201
  3. MORPHINE [Concomitant]
     Dates: start: 20061201, end: 20070201
  4. MORPHINE [Concomitant]
     Dates: start: 20070201, end: 20070501
  5. MORPHINE [Concomitant]
     Dosage: 2X50MG
     Dates: start: 20070501, end: 20070601
  6. MORPHINE [Concomitant]
     Dosage: CONTROLLED RELEASE MORPHINE DOSE WAS INCREASED TO 2 X60 MG, 20 MG P.R.N.
     Dates: start: 20070601, end: 20070901
  7. MORPHINE [Concomitant]
     Dosage: 2X90MG
     Dates: start: 20070901, end: 20071101
  8. MORPHINE [Concomitant]
     Dosage: 2X120MG
     Dates: start: 20071101, end: 20071201
  9. MORPHINE [Concomitant]
     Dosage: MORNING DOSE. EVENING DOSE OF 120MG REMAINED THE SAME.
     Dates: start: 20071201, end: 20080320
  10. MORPHINE [Concomitant]
     Dates: start: 20080320
  11. KETOPROFEN [Concomitant]
     Dosage: CONTROLLED RELEASE
     Dates: start: 20061101
  12. GABAPENTIN [Concomitant]
     Dates: start: 20061101, end: 20061201
  13. GABAPENTIN [Concomitant]
     Dates: start: 20061201, end: 20070301
  14. GABAPENTIN [Concomitant]
     Dates: start: 20070301, end: 20070601
  15. GABAPENTIN [Concomitant]
     Dates: start: 20070601
  16. MIANSERIN [Concomitant]
     Dates: start: 20061101, end: 20061101
  17. OMEPRAZOLE [Concomitant]
     Dates: start: 20061101
  18. METOCLOPRAMIDE [Concomitant]
     Dates: start: 20061101
  19. LACTULOSE [Concomitant]
     Dates: start: 20061101
  20. BISACODYL [Concomitant]
     Dosage: TABLET IN CASE OF LACK OF BOWEL MOVEMENT IN 2 DAYS
     Dates: start: 20061101
  21. PAMIDRONATE DISODIUM [Concomitant]
     Dates: start: 20061101
  22. LORAZEPAM [Concomitant]
     Dates: start: 20061101
  23. VITAMIN D3 [Concomitant]
     Dates: start: 20070101
  24. CALCIUM [Concomitant]
     Dates: start: 20070101
  25. FUROSEMIDE [Concomitant]
     Dates: start: 20070201, end: 20070401
  26. FUROSEMIDE [Concomitant]
     Dates: start: 20070401, end: 20070401
  27. FUROSEMIDE [Concomitant]
     Dates: start: 20070401
  28. CARDIAMID-COFFEIN [Concomitant]
     Dates: start: 20070401
  29. DICLOFENAC [Concomitant]
     Dosage: GEL
     Dates: start: 20070501
  30. DEXAMETHASONE [Concomitant]
     Dates: start: 20070901, end: 20080320
  31. DEXAMETHASONE [Concomitant]
     Dates: start: 20080320
  32. ACYCLOVIR [Concomitant]
     Dates: start: 20080201
  33. ZINC [Concomitant]
     Dates: start: 20080201
  34. MANNITOL [Concomitant]
     Dosage: 250ML OF 20% SOLUTION
     Dates: start: 20080320
  35. PIRACETAM [Concomitant]
     Dates: start: 20080320

REACTIONS (1)
  - DEATH [None]
